FAERS Safety Report 21118513 (Version 1)
Quarter: 2022Q3

REPORT INFORMATION
  Report Type: Report from Study
  Country: US (occurrence: US)
  Receive Date: 20220722
  Receipt Date: 20220722
  Transmission Date: 20221027
  Serious: Yes (Other)
  Sender: FDA-Public Use
  Company Number: US-JNJFOC-20220741461

PATIENT
  Sex: Female

DRUGS (1)
  1. COBICISTAT\DARUNAVIR ETHANOLATE [Suspect]
     Active Substance: COBICISTAT\DARUNAVIR ETHANOLATE
     Indication: HIV infection
     Dosage: DARUNAVIR 800 MG, COBICISTAT 150 MG
     Route: 048

REACTIONS (3)
  - Premature labour [Recovered/Resolved]
  - Exposure during pregnancy [Recovered/Resolved]
  - Drug level below therapeutic [Unknown]
